FAERS Safety Report 10878988 (Version 1)
Quarter: 2015Q1

REPORT INFORMATION
  Report Type: Spontaneous
  Country: US (occurrence: US)
  Receive Date: 20150302
  Receipt Date: 20150302
  Transmission Date: 20150721
  Serious: Yes (Congenital Anomaly, Other)
  Sender: FDA-Public Use
  Company Number: US-APOTEX-2015AP006978

PATIENT
  Sex: Male

DRUGS (1)
  1. PAXIL [Suspect]
     Active Substance: PAROXETINE HYDROCHLORIDE
     Indication: DEPRESSION
     Dosage: 25 MG, UNKNOWN
     Route: 064
     Dates: end: 1995

REACTIONS (8)
  - Gastrointestinal disorder [Unknown]
  - Single umbilical artery [Unknown]
  - Foetal exposure during pregnancy [Unknown]
  - Ileus [Unknown]
  - Necrotising colitis [Unknown]
  - Patent ductus arteriosus [Unknown]
  - Premature baby [Unknown]
  - Congenital heart valve disorder [Unknown]

NARRATIVE: CASE EVENT DATE: 19950314
